FAERS Safety Report 18191715 (Version 2)
Quarter: 2021Q3

REPORT INFORMATION
  Report Type: Spontaneous
  Country: US (occurrence: US)
  Receive Date: 20200825
  Receipt Date: 20210920
  Transmission Date: 20211014
  Serious: No
  Sender: FDA-Public Use
  Company Number: US-CELLTRION INC.-2020US020400

PATIENT

DRUGS (3)
  1. INFLECTRA [Suspect]
     Active Substance: INFLIXIMAB-DYYB
     Indication: CROHN^S DISEASE
     Dosage: EVERY 8 WEEKS
     Route: 065
     Dates: start: 201910
  2. INFLECTRA [Suspect]
     Active Substance: INFLIXIMAB-DYYB
     Dosage: DOSAGE INCREASED FROM 10 VIALS TO 11 VIALS
     Route: 065
  3. INFLECTRA [Suspect]
     Active Substance: INFLIXIMAB-DYYB
     Dosage: 100MG VIALS?QUANTITY OF 11 VIALS EVERY 8 WEEKS
     Route: 065

REACTIONS (4)
  - Weight increased [Unknown]
  - Intentional dose omission [Unknown]
  - Drug specific antibody present [Unknown]
  - Product dose omission issue [Unknown]
